FAERS Safety Report 21758943 (Version 1)
Quarter: 2022Q4

REPORT INFORMATION
  Report Type: Spontaneous
  Country: IT (occurrence: IT)
  Receive Date: 20221221
  Receipt Date: 20221221
  Transmission Date: 20230113
  Serious: Yes (Other)
  Sender: FDA-Public Use
  Company Number: None

PATIENT
  Age: 86 Year
  Sex: Female

DRUGS (6)
  1. XARELTO [Suspect]
     Active Substance: RIVAROXABAN
     Indication: Atrial fibrillation
     Route: 048
  2. MODURETIC 5-50 [Suspect]
     Active Substance: AMILORIDE HYDROCHLORIDE\HYDROCHLOROTHIAZIDE
     Indication: Hypertension
     Route: 048
  3. AMIODARONE [Suspect]
     Active Substance: AMIODARONE
     Indication: Atrial fibrillation
     Route: 048
  4. IRBESARTAN [Concomitant]
     Active Substance: IRBESARTAN
  5. SIMVASTATIN [Concomitant]
     Active Substance: SIMVASTATIN
  6. LERCANIDIPINA [LERCANIDIPINE] [Concomitant]

REACTIONS (2)
  - Atrial fibrillation [Recovering/Resolving]
  - Drug ineffective [Recovered/Resolved]

NARRATIVE: CASE EVENT DATE: 20220816
